FAERS Safety Report 16935893 (Version 2)
Quarter: 2019Q4

REPORT INFORMATION
  Report Type: Report from Study
  Country: US (occurrence: US)
  Receive Date: 20191018
  Receipt Date: 20191101
  Transmission Date: 20200122
  Serious: Yes (Death)
  Sender: FDA-Public Use
  Company Number: US-TAIHO ONCOLOGY  INC-EU-2019-03397

PATIENT
  Sex: Male

DRUGS (11)
  1. GABAPENTIN. [Concomitant]
     Active Substance: GABAPENTIN
  2. SEROQUEL [Concomitant]
     Active Substance: QUETIAPINE FUMARATE
  3. LONSURF [Suspect]
     Active Substance: TIPIRACIL HYDROCHLORIDE\TRIFLURIDINE
     Indication: RECTAL CANCER METASTATIC
     Dosage: CURRENT CYCLE 1
     Route: 048
     Dates: start: 20190617, end: 20190715
  4. ATIVAN [Concomitant]
     Active Substance: LORAZEPAM
  5. LEVAQUIN [Concomitant]
     Active Substance: LEVOFLOXACIN
  6. MIRTAZAPINE. [Concomitant]
     Active Substance: MIRTAZAPINE
  7. OMEPRAZOLE. [Concomitant]
     Active Substance: OMEPRAZOLE
     Dosage: DELAYED RELEASE
  8. CORTEF [Concomitant]
     Active Substance: HYDROCORTISONE
  9. BACLOFEN. [Concomitant]
     Active Substance: BACLOFEN
  10. ELIQUIS [Concomitant]
     Active Substance: APIXABAN
  11. VENLAFAXINE ER [Concomitant]
     Active Substance: VENLAFAXINE HYDROCHLORIDE
     Dosage: EXTENDED RELEASE 24 HR

REACTIONS (1)
  - Disease progression [Fatal]
